FAERS Safety Report 9426794 (Version 1)
Quarter: 2013Q3

REPORT INFORMATION
  Report Type: Spontaneous
  Country: US (occurrence: US)
  Receive Date: 20130730
  Receipt Date: 20130730
  Transmission Date: 20140515
  Serious: Yes (Other)
  Sender: FDA-Public Use
  Company Number: US-SANOFI-AVENTIS-2013SA020582

PATIENT
  Age: 42 Year
  Sex: Female

DRUGS (1)
  1. AMBIEN [Suspect]
     Indication: INSOMNIA
     Dosage: PRODUCT STARTED FROM A COUPLE OF YEAR
     Route: 048

REACTIONS (2)
  - Impaired driving ability [Unknown]
  - Road traffic accident [Recovered/Resolved]
